FAERS Safety Report 18485877 (Version 1)
Quarter: 2020Q4

REPORT INFORMATION
  Report Type: Spontaneous
  Country: US (occurrence: US)
  Receive Date: 20201110
  Receipt Date: 20201110
  Transmission Date: 20210114
  Serious: Yes (Disabling)
  Sender: FDA-Public Use
  Company Number: None

PATIENT
  Age: 60 Year
  Sex: Female
  Weight: 56.25 kg

DRUGS (8)
  1. SPIRONOLACTONE 50 MG [Suspect]
     Active Substance: SPIRONOLACTONE
     Indication: ALOPECIA
     Dosage: ?          QUANTITY:1 TABLET(S);?
     Route: 048
     Dates: start: 20191210, end: 20200106
  2. AIMOVIG [Concomitant]
     Active Substance: ERENUMAB-AOOE
  3. RELPAX [Concomitant]
     Active Substance: ELETRIPTAN HYDROBROMIDE
  4. TUMERIC [Concomitant]
     Active Substance: HERBALS\TURMERIC
  5. EZETIMIBE. [Concomitant]
     Active Substance: EZETIMIBE
  6. GLYCOLAX [Concomitant]
     Active Substance: POLYETHYLENE GLYCOL 3350
  7. VITAMIN D [Concomitant]
     Active Substance: VITAMIN D NOS
  8. LEVOTHYROXINE. [Concomitant]
     Active Substance: LEVOTHYROXINE

REACTIONS (11)
  - Pruritus [None]
  - Total bile acids increased [None]
  - Dizziness [None]
  - Hepatic enzyme increased [None]
  - Orthostatic hypotension [None]
  - Fatigue [None]
  - Drug interaction [None]
  - Alanine aminotransferase increased [None]
  - Blood alkaline phosphatase increased [None]
  - Aspartate aminotransferase increased [None]
  - Nausea [None]

NARRATIVE: CASE EVENT DATE: 20200106
